FAERS Safety Report 23744079 (Version 3)
Quarter: 2025Q2

REPORT INFORMATION
  Report Type: Spontaneous
  Country: US (occurrence: US)
  Receive Date: 20240415
  Receipt Date: 20250422
  Transmission Date: 20250717
  Serious: No
  Sender: SANOFI AVENTIS
  Company Number: US-SA-SAC20240412000292

PATIENT
  Age: 64 Year
  Sex: Female

DRUGS (1)
  1. DUPIXENT [Suspect]
     Active Substance: DUPILUMAB
     Indication: Neurodermatitis
     Dosage: 300 MG, QOW
     Route: 058
     Dates: start: 202409

REACTIONS (7)
  - Rosacea [Unknown]
  - Swelling [Unknown]
  - Skin discolouration [Unknown]
  - Rash [Unknown]
  - Pruritus [Unknown]
  - Therapeutic response decreased [Unknown]
  - Drug ineffective [Unknown]
